FAERS Safety Report 8341217-3 (Version None)
Quarter: 2012Q2

REPORT INFORMATION
  Report Type: 
  Country: None (occurrence: None)
  Receive Date: 20120507
  Receipt Date: 20120425
  Transmission Date: 20120825
  Serious: Yes (Other)
  Sender: FDA-Public Use
  Company Number: US-JNJFOC-20120504636

PATIENT
  Sex: Male
  Weight: 106.6 kg

DRUGS (6)
  1. DURAGESIC-100 [Suspect]
     Indication: SURGERY
     Route: 062
     Dates: start: 20020101
  2. DURAGESIC-100 [Suspect]
     Indication: PAIN
     Route: 062
     Dates: start: 20020101
  3. DURAGESIC-100 [Suspect]
     Indication: PAIN
     Route: 062
  4. DURAGESIC-100 [Suspect]
     Indication: SURGERY
     Route: 062
  5. MOTRIN IB [Concomitant]
     Indication: SURGERY
     Route: 048
  6. MOTRIN IB [Concomitant]
     Indication: PAIN
     Route: 048

REACTIONS (8)
  - THERAPEUTIC RESPONSE UNEXPECTED [None]
  - WRONG TECHNIQUE IN DRUG USAGE PROCESS [None]
  - POOR QUALITY DRUG ADMINISTERED [None]
  - ADVERSE EVENT [None]
  - PRODUCT QUALITY ISSUE [None]
  - DYSPEPSIA [None]
  - GASTROINTESTINAL ULCER [None]
  - MEMORY IMPAIRMENT [None]
